FAERS Safety Report 7394798-0 (Version None)
Quarter: 2011Q2

REPORT INFORMATION
  Report Type: 
  Country: None (occurrence: None)
  Receive Date: 20110405
  Receipt Date: 20110324
  Transmission Date: 20111010
  Serious: Yes (Death, Hospitalization)
  Sender: FDA-Public Use
  Company Number: A0772850A

PATIENT
  Age: 71 Year
  Sex: Female
  Weight: 96.8 kg

DRUGS (14)
  1. COLCHICINE [Concomitant]
  2. LOTREL [Concomitant]
  3. TOPROL-XL [Concomitant]
  4. AVANDIA [Suspect]
     Indication: DIABETES MELLITUS
     Dosage: 8MG PER DAY
     Route: 048
     Dates: start: 20030703
  5. TIMOLOL [Concomitant]
  6. ZIAGEN [Concomitant]
  7. ARIMIDEX [Concomitant]
  8. POTASSIUM CHLORIDE [Concomitant]
  9. GLUCOVANCE [Concomitant]
  10. ASPIRIN [Concomitant]
  11. COUMADIN [Concomitant]
  12. ZERIT [Concomitant]
  13. LIPITOR [Concomitant]
  14. EPIVIR [Concomitant]

REACTIONS (3)
  - CARDIAC FAILURE CONGESTIVE [None]
  - DEATH [None]
  - DEEP VEIN THROMBOSIS [None]
